FAERS Safety Report 6250852-8 (Version None)
Quarter: 2009Q2

REPORT INFORMATION
  Report Type: 
  Country: None (occurrence: None)
  Receive Date: 20090630
  Receipt Date: 20090413
  Transmission Date: 20091009
  Serious: No
  Sender: FDA-Public Use
  Company Number: US-ABBOTT-09P-163-0568015-00

PATIENT
  Sex: Male

DRUGS (15)
  1. ZEMPLAR [Suspect]
     Indication: HYPERPARATHYROIDISM
     Dates: start: 20080701
  2. LANTUS [Concomitant]
     Indication: DRUG USE FOR UNKNOWN INDICATION
  3. TYLENOL (CAPLET) [Concomitant]
     Indication: DRUG USE FOR UNKNOWN INDICATION
  4. COLCHINE [Concomitant]
     Indication: DRUG USE FOR UNKNOWN INDICATION
  5. ATENLOL [Concomitant]
     Indication: DRUG USE FOR UNKNOWN INDICATION
  6. AMLOPINE [Concomitant]
     Indication: DRUG USE FOR UNKNOWN INDICATION
  7. NIASPAN [Concomitant]
     Indication: DRUG USE FOR UNKNOWN INDICATION
  8. BENICAR [Concomitant]
     Indication: DRUG USE FOR UNKNOWN INDICATION
  9. NEURONTIN [Concomitant]
     Indication: DRUG USE FOR UNKNOWN INDICATION
  10. HYDROCODOEN [Concomitant]
     Indication: DRUG USE FOR UNKNOWN INDICATION
  11. VITAMIN B-12 [Concomitant]
     Indication: DRUG USE FOR UNKNOWN INDICATION
  12. VITAMIN D [Concomitant]
     Indication: DRUG USE FOR UNKNOWN INDICATION
  13. LASIX [Concomitant]
     Indication: DRUG USE FOR UNKNOWN INDICATION
  14. METOLAZONE [Concomitant]
     Indication: DRUG USE FOR UNKNOWN INDICATION
  15. ALLOPURINOL [Concomitant]
     Indication: DRUG USE FOR UNKNOWN INDICATION

REACTIONS (1)
  - FEELING HOT [None]
